FAERS Safety Report 8623179-4 (Version None)
Quarter: 2012Q3

REPORT INFORMATION
  Report Type: 
  Country: None (occurrence: None)
  Receive Date: 20120827
  Receipt Date: 20120823
  Transmission Date: 20120928
  Serious: Yes (Death, Hospitalization, Other)
  Sender: FDA-Public Use
  Company Number: PHHY2012MX049902

PATIENT
  Sex: Female

DRUGS (4)
  1. TEGRETOL [Suspect]
  2. PENTOXIFYLLINE [Concomitant]
  3. EXFORGE [Suspect]
     Indication: HYPERTENSION
     Dosage: 1 DF QD (160 MG VAL /5 MG AMLO)  DAILY
     Dates: start: 20100101, end: 20120301
  4. SERVILAN [Concomitant]

REACTIONS (9)
  - GUILLAIN-BARRE SYNDROME [None]
  - DIARRHOEA [None]
  - MOVEMENT DISORDER [None]
  - QUADRIPLEGIA [None]
  - ASTHENIA [None]
  - VERTIGO [None]
  - RESPIRATORY ARREST [None]
  - ABDOMINAL PAIN [None]
  - CARDIAC ARREST [None]
